FAERS Safety Report 15950303 (Version 2)
Quarter: 2019Q1

REPORT INFORMATION
  Report Type: Spontaneous
  Country: CN (occurrence: CN)
  Receive Date: 20190211
  Receipt Date: 20190219
  Transmission Date: 20190417
  Serious: Yes (Death, Other)
  Sender: FDA-Public Use
  Company Number: CN-B.I. PHARMACEUTICALS,INC./RIDGEFIELD-2019-BI-006010

PATIENT
  Age: 55 Year
  Sex: Female

DRUGS (1)
  1. GILOTRIF [Suspect]
     Active Substance: AFATINIB
     Indication: GALLBLADDER ADENOCARCINOMA
     Route: 065
     Dates: start: 20170717, end: 20180115

REACTIONS (5)
  - Post procedural infection [Unknown]
  - Septic shock [Fatal]
  - Diarrhoea [Recovered/Resolved]
  - Rash [Unknown]
  - Malignant neoplasm progression [Unknown]
